FAERS Safety Report 6723845-1 (Version None)
Quarter: 2010Q2

REPORT INFORMATION
  Report Type: 
  Country: None (occurrence: None)
  Receive Date: 20100513
  Receipt Date: 20100305
  Transmission Date: 20101027
  Serious: Yes (Hospitalization, Other)
  Sender: FDA-Public Use
  Company Number: JP-ROCHE-663688

PATIENT
  Sex: Female
  Weight: 38 kg

DRUGS (9)
  1. CELLCEPT [Suspect]
     Indication: PROPHYLAXIS AGAINST TRANSPLANT REJECTION
     Route: 048
     Dates: start: 20020731, end: 20060209
  2. CELLCEPT [Suspect]
     Route: 048
     Dates: start: 20060210, end: 20090303
  3. RITUXAN [Concomitant]
     Route: 041
     Dates: start: 20080513, end: 20080513
  4. PROGRAF [Concomitant]
     Route: 048
     Dates: start: 20020731
  5. MEDROL [Concomitant]
     Route: 048
     Dates: start: 20020731
  6. SELBEX [Concomitant]
     Route: 048
     Dates: start: 20020731
  7. MEVALOTIN [Concomitant]
     Route: 048
     Dates: start: 20090413
  8. ACECOL [Concomitant]
     Route: 048
  9. CANDESARTAN CILEXETIL [Concomitant]
     Route: 048
     Dates: start: 20090202

REACTIONS (2)
  - BONE MARROW FAILURE [None]
  - MALABSORPTION [None]
